FAERS Safety Report 19427522 (Version 2)
Quarter: 2021Q2

REPORT INFORMATION
  Report Type: Report from Study
  Country: US (occurrence: CN)
  Receive Date: 20210617
  Receipt Date: 20210621
  Transmission Date: 20210717
  Serious: Yes (Hospitalization)
  Sender: FDA-Public Use
  Company Number: CN-ASTELLAS-2021US022142

PATIENT
  Age: 74 Year
  Sex: Male

DRUGS (5)
  1. GOSERELIN ACETATE [Concomitant]
     Active Substance: GOSERELIN ACETATE
     Indication: PROSTATE CANCER
     Dosage: 10.8 MG, EVERY 3 MONTHS (Q3M)
     Route: 065
     Dates: start: 20200609
  2. ENZALUTAMIDE [Suspect]
     Active Substance: ENZALUTAMIDE
     Indication: HORMONE-REFRACTORY PROSTATE CANCER
     Route: 048
     Dates: start: 20200702
  3. ETORICOXIB. [Concomitant]
     Active Substance: ETORICOXIB
     Indication: ARTHRALGIA
     Dosage: 1 DF, AS NEEDED (PRN)
     Route: 048
     Dates: start: 20210330
  4. TALAZOPARIB. [Suspect]
     Active Substance: TALAZOPARIB
     Indication: HORMONE-REFRACTORY PROSTATE CANCER
     Route: 048
     Dates: start: 20201212
  5. ETORICOXIB. [Concomitant]
     Active Substance: ETORICOXIB
     Indication: PAIN IN EXTREMITY

REACTIONS (1)
  - Gastritis [Recovering/Resolving]

NARRATIVE: CASE EVENT DATE: 20210501
